FAERS Safety Report 11139546 (Version 1)
Quarter: 2015Q2

REPORT INFORMATION
  Report Type: Spontaneous
  Country: US (occurrence: None)
  Receive Date: 20150522
  Receipt Date: 20150522
  Transmission Date: 20150821
  Serious: Yes (Other)
  Sender: FDA-Public Use
  Company Number: 2015ST000082

PATIENT

DRUGS (3)
  1. FISH OIL (FISH OIL) [Concomitant]
     Active Substance: FISH OIL
  2. GLUMETZA [Suspect]
     Active Substance: METFORMIN HYDROCHLORIDE
     Indication: TYPE 2 DIABETES MELLITUS
     Dates: start: 20140414, end: 201404
  3. AMLODIPINE [Concomitant]
     Active Substance: AMLODIPINE BESYLATE

REACTIONS (6)
  - Hypophagia [None]
  - Drug hypersensitivity [None]
  - Weight decreased [None]
  - Malaise [None]
  - Renal injury [None]
  - Vomiting [None]

NARRATIVE: CASE EVENT DATE: 20140430
